FAERS Safety Report 9611550 (Version 3)
Quarter: 2013Q4

REPORT INFORMATION
  Report Type: Spontaneous
  Country: CA (occurrence: CA)
  Receive Date: 20131010
  Receipt Date: 20131114
  Transmission Date: 20140711
  Serious: Yes (Hospitalization)
  Sender: FDA-Public Use
  Company Number: CA-AMGEN-CANSP2013070658

PATIENT
  Age: 62 Year
  Sex: Female
  Weight: 48.9 kg

DRUGS (4)
  1. ENBREL [Suspect]
     Indication: ANKYLOSING SPONDYLITIS
     Dosage: 50 MG, 2 TIMES/WK
     Route: 058
     Dates: start: 20130717
  2. ENBREL [Suspect]
     Indication: SACROILIITIS
  3. SYNTHROID [Concomitant]
     Indication: HYPOTHYROIDISM
     Dosage: 0.075 MG, QD
     Route: 048
  4. ARANESP [Concomitant]
     Indication: RENAL FAILURE CHRONIC
     Dosage: 30 MCG, UNK
     Route: 030

REACTIONS (6)
  - Vomiting [Recovered/Resolved]
  - Dehydration [Unknown]
  - Blood creatinine increased [Unknown]
  - Blood potassium increased [Unknown]
  - Nausea [Unknown]
  - Drug ineffective [Not Recovered/Not Resolved]
